FAERS Safety Report 22971491 (Version 3)
Quarter: 2023Q4

REPORT INFORMATION
  Report Type: Spontaneous
  Country: DE (occurrence: DE)
  Receive Date: 20230922
  Receipt Date: 20231010
  Transmission Date: 20240109
  Serious: Yes (Life-Threatening, Hospitalization)
  Sender: FDA-Public Use
  Company Number: DE-DCGMA-23201855

PATIENT
  Age: 37 Year
  Sex: Male
  Weight: 78 kg

DRUGS (1)
  1. RINVOQ [Suspect]
     Active Substance: UPADACITINIB
     Indication: Crohn^s disease
     Dosage: DOSE FORM UNKNOWN
     Route: 048
     Dates: start: 20230712, end: 20230816

REACTIONS (2)
  - Cerebral infarction [Recovering/Resolving]
  - Thalamic infarction [Recovering/Resolving]

NARRATIVE: CASE EVENT DATE: 20230816
